FAERS Safety Report 12089872 (Version 1)
Quarter: 2016Q1

REPORT INFORMATION
  Report Type: Report from Study
  Country: US (occurrence: US)
  Receive Date: 20160218
  Receipt Date: 20160218
  Transmission Date: 20160526
  Serious: Yes (Other)
  Sender: FDA-Public Use
  Company Number: US-ASTELLAS-2008003224

PATIENT
  Age: 68 Year
  Sex: Female

DRUGS (4)
  1. ERLOTINIB [Suspect]
     Active Substance: ERLOTINIB
     Indication: BILIARY NEOPLASM
     Route: 048
     Dates: start: 20071214, end: 20080528
  2. BEVACIZUMAB [Suspect]
     Active Substance: BEVACIZUMAB
     Indication: BILIARY NEOPLASM
     Dosage: 5 MG/KG, DAYS 1 AND 15
     Route: 042
     Dates: start: 20071214, end: 20080516
  3. BEVACIZUMAB [Suspect]
     Active Substance: BEVACIZUMAB
     Indication: GALLBLADDER CANCER METASTATIC
  4. ERLOTINIB [Suspect]
     Active Substance: ERLOTINIB
     Indication: GALLBLADDER CANCER METASTATIC
     Route: 048

REACTIONS (1)
  - Hyponatraemia [Recovered/Resolved]

NARRATIVE: CASE EVENT DATE: 20080529
